FAERS Safety Report 7809488-7 (Version None)
Quarter: 2011Q4

REPORT INFORMATION
  Report Type: 
  Country: None (occurrence: None)
  Receive Date: 20111012
  Receipt Date: 20110928
  Transmission Date: 20120403
  Serious: Yes (Other)
  Sender: FDA-Public Use
  Company Number: PHHY2011BR86785

PATIENT
  Age: 44 Year
  Sex: Female
  Weight: 84 kg

DRUGS (4)
  1. HYDROCHLOROTHIAZIDE [Suspect]
     Dosage: 12.5 MG, UNK
  2. DIOVAN [Suspect]
     Indication: HYPERTENSION
     Dosage: 160 MG, UNK
  3. SIMVASTATIN [Suspect]
     Indication: HYPERCHOLESTEROLAEMIA
     Dosage: 40 MG, DAILY
  4. CAPTOPRIL [Suspect]
     Dosage: 50 MG, TID

REACTIONS (5)
  - BLOOD PRESSURE ABNORMAL [None]
  - MITRAL VALVE INCOMPETENCE [None]
  - HEPATIC STEATOSIS [None]
  - LEFT VENTRICULAR HYPERTROPHY [None]
  - DIASTOLIC DYSFUNCTION [None]
